FAERS Safety Report 5827824-8 (Version None)
Quarter: 2008Q3

REPORT INFORMATION
  Report Type: 
  Country: None (occurrence: None)
  Receive Date: 20080728
  Receipt Date: 20080721
  Transmission Date: 20090109
  Serious: Yes (Other)
  Sender: FDA-Public Use
  Company Number: CHPA2008US12337

PATIENT
  Age: 54 Year
  Sex: Male

DRUGS (1)
  1. NUPERCAINAL HEMORRHOIDAL/ANES OINTMENT (NCH)(CINCHOCAINE) OINTMENT [Suspect]
     Indication: RECTAL FISSURE
     Dosage: UNK, BID, TOPICAL
     Route: 061

REACTIONS (3)
  - BLINDNESS TRANSIENT [None]
  - OFF LABEL USE [None]
  - WRONG TECHNIQUE IN DRUG USAGE PROCESS [None]
